FAERS Safety Report 6826970-X (Version None)
Quarter: 2010Q3

REPORT INFORMATION
  Report Type: 
  Country: None (occurrence: None)
  Receive Date: 20100709
  Receipt Date: 20100702
  Transmission Date: 20110219
  Serious: Yes (Death, Hospitalization)
  Sender: FDA-Public Use
  Company Number: FR-JNJFOC-20100701361

PATIENT
  Age: 73 Year
  Sex: Male

DRUGS (5)
  1. REMICADE [Suspect]
     Indication: ANKYLOSING SPONDYLITIS
     Route: 042
  2. REMICADE [Suspect]
     Route: 042
  3. REMICADE [Suspect]
     Route: 042
  4. CORTANCYL [Suspect]
     Indication: ANKYLOSING SPONDYLITIS
  5. ARAVA [Suspect]
     Indication: ANKYLOSING SPONDYLITIS

REACTIONS (1)
  - DISSEMINATED TUBERCULOSIS [None]
